FAERS Safety Report 9714060 (Version 2)
Quarter: 2015Q3

REPORT INFORMATION
  Report Type: Spontaneous
  Country: US (occurrence: US)
  Receive Date: 20131126
  Receipt Date: 20150803
  Transmission Date: 20151125
  Serious: No
  Sender: FDA-Public Use
  Company Number: US-GILEAD-2008-0018780

PATIENT
  Age: 74 Year
  Sex: Female
  Weight: 80.74 kg

DRUGS (14)
  1. LEVOXYL [Concomitant]
     Active Substance: LEVOTHYROXINE SODIUM
  2. PRILOSEC [Concomitant]
     Active Substance: OMEPRAZOLE MAGNESIUM
  3. TRAMADOL HCL [Concomitant]
     Active Substance: TRAMADOL HYDROCHLORIDE
  4. LETAIRIS [Suspect]
     Active Substance: AMBRISENTAN
     Indication: PULMONARY ARTERIAL HYPERTENSION
     Route: 048
     Dates: start: 20081004, end: 20081024
  5. SINGULAIR [Concomitant]
     Active Substance: MONTELUKAST SODIUM
  6. ALBUTEROL. [Concomitant]
     Active Substance: ALBUTEROL
  7. PULMICORT TURBUHALER [Concomitant]
     Active Substance: BUDESONIDE
  8. CRESTOR [Concomitant]
     Active Substance: ROSUVASTATIN CALCIUM
  9. PREMARIN [Concomitant]
     Active Substance: ESTROGENS, CONJUGATED
  10. REVATIO [Concomitant]
     Active Substance: SILDENAFIL CITRATE
  11. ALLEGRA [Concomitant]
     Active Substance: FEXOFENADINE HYDROCHLORIDE
  12. NEURONTIN [Concomitant]
     Active Substance: GABAPENTIN
  13. ATENOLOL. [Concomitant]
     Active Substance: ATENOLOL
  14. ASA LO-DOSE [Concomitant]

REACTIONS (3)
  - Headache [Unknown]
  - Constipation [Unknown]
  - Abdominal pain upper [Unknown]
